FAERS Safety Report 7008979-9 (Version None)
Quarter: 2010Q3

REPORT INFORMATION
  Report Type: 
  Country: None (occurrence: None)
  Receive Date: 20100921
  Receipt Date: 20100909
  Transmission Date: 20110219
  Serious: Yes (Hospitalization)
  Sender: FDA-Public Use
  Company Number: CRC-10-125

PATIENT
  Age: 62 Year
  Sex: Male
  Weight: 93.182 kg

DRUGS (10)
  1. METFORMIN HYDROCHLORIDE [Suspect]
     Indication: TYPE 2 DIABETES MELLITUS
     Dosage: 1000MG BID; ORAL, 1000MG, 2 IN1  D), ORAL; 850MG 2 IN 1 D, ORAL; 1000MG, 2 IN 1D), ORAL.
     Route: 048
     Dates: start: 20090630, end: 20091123
  2. METFORMIN HYDROCHLORIDE [Suspect]
     Indication: TYPE 2 DIABETES MELLITUS
     Dosage: 1000MG BID; ORAL, 1000MG, 2 IN1  D), ORAL; 850MG 2 IN 1 D, ORAL; 1000MG, 2 IN 1D), ORAL.
     Route: 048
     Dates: start: 20091123, end: 20100620
  3. METFORMIN HYDROCHLORIDE [Suspect]
     Indication: TYPE 2 DIABETES MELLITUS
     Dosage: 1000MG BID; ORAL, 1000MG, 2 IN1  D), ORAL; 850MG 2 IN 1 D, ORAL; 1000MG, 2 IN 1D), ORAL.
     Route: 048
     Dates: start: 20100623
  4. STUDY DRUG DUTOGLIPTIN (DOUBLE-BLIND) [Suspect]
     Indication: TYPE 2 DIABETES MELLITUS
     Dosage: ONE IN ONE DAY, ORAL.
     Route: 048
     Dates: start: 20091123, end: 20100614
  5. GLIMEPIRIDE [Suspect]
     Indication: TYPE 2 DIABETES MELLITUS
     Dosage: 4MG, 1 IN 1D, ORAL.
     Route: 048
     Dates: start: 20091123, end: 20100614
  6. ACTOS [Suspect]
     Indication: TYPE 2 DIABETES MELLITUS
     Dosage: 30MG, 1 IN 1D, ORAL.
     Route: 048
     Dates: start: 20100419, end: 20100518
  7. GUANFACINE HYDROCHLORIDE [Concomitant]
  8. LISINOPRIL [Concomitant]
  9. LEXAPRO [Concomitant]
  10. SOMA [Concomitant]

REACTIONS (7)
  - DEHYDRATION [None]
  - DIZZINESS [None]
  - HYPERHIDROSIS [None]
  - HYPOTENSION [None]
  - NAUSEA [None]
  - OLIGODIPSIA [None]
  - RENAL FAILURE ACUTE [None]
